FAERS Safety Report 7174316-2 (Version None)
Quarter: 2010Q4

REPORT INFORMATION
  Report Type: 
  Country: None (occurrence: None)
  Receive Date: 20101215
  Receipt Date: 20101215
  Transmission Date: 20110411
  Serious: Yes (Other)
  Sender: FDA-Public Use
  Company Number: None

PATIENT
  Age: 57 Year
  Sex: Female
  Weight: 81.6475 kg

DRUGS (3)
  1. PROPOXYPHENE HCL AND ACETAMINOPHEN [Suspect]
     Indication: INFLAMMATION
     Dosage: 1 TAB EVERY 4 HOURS EVERY 4 HOURS
     Dates: start: 20080101, end: 20100101
  2. PROPOXYPHENE HCL AND ACETAMINOPHEN [Suspect]
     Indication: LIMB INJURY
     Dosage: 1 TAB EVERY 4 HOURS EVERY 4 HOURS
     Dates: start: 20080101, end: 20100101
  3. PROPOXYPHENE HCL AND ACETAMINOPHEN [Suspect]
     Indication: PAIN IN EXTREMITY
     Dosage: 1 TAB EVERY 4 HOURS EVERY 4 HOURS
     Dates: start: 20080101, end: 20100101

REACTIONS (1)
  - HEART RATE INCREASED [None]
